FAERS Safety Report 5827072-1 (Version None)
Quarter: 2008Q3

REPORT INFORMATION
  Report Type: 
  Country: None (occurrence: None)
  Receive Date: 20080730
  Receipt Date: 20080715
  Transmission Date: 20090109
  Serious: Yes (Other)
  Sender: FDA-Public Use
  Company Number: B0529085A

PATIENT
  Age: 13 Year
  Sex: Female

DRUGS (9)
  1. ABACAVIR [Suspect]
     Indication: HIV INFECTION
     Dates: start: 20010101
  2. LAMIVUDINE [Suspect]
     Indication: HIV INFECTION
     Dates: start: 19970101
  3. NELFINAVIR [Suspect]
     Indication: HIV INFECTION
     Dates: start: 19970101
  4. DIDANOSINE [Suspect]
     Indication: HIV INFECTION
     Dates: start: 20010101
  5. STAVUDINE [Suspect]
     Indication: HIV INFECTION
     Dates: start: 19970101
  6. EFAVIRENZ [Suspect]
     Indication: HIV INFECTION
     Dates: start: 20010101
  7. RITONAVIR [Suspect]
     Indication: HIV INFECTION
  8. LOPINAVIR AND RITONAVIR [Suspect]
     Indication: HIV INFECTION
     Dates: start: 20050101
  9. ATAZANAVIR [Suspect]
     Indication: HIV INFECTION

REACTIONS (7)
  - BLOOD CHOLESTEROL INCREASED [None]
  - DRUG RESISTANCE [None]
  - DRUG TOXICITY [None]
  - FACIAL WASTING [None]
  - HYPERLIPIDAEMIA [None]
  - LIPOATROPHY [None]
  - LIPODYSTROPHY ACQUIRED [None]
